FAERS Safety Report 21069261 (Version 1)
Quarter: 2022Q3

REPORT INFORMATION
  Report Type: Spontaneous
  Country: US (occurrence: US)
  Receive Date: 20220712
  Receipt Date: 20220712
  Transmission Date: 20221027
  Serious: No
  Sender: FDA-Public Use
  Company Number: US-AMRYT PHARMACEUTICALS DAC-AEGR005874

PATIENT
  Sex: Male

DRUGS (1)
  1. MYCAPSSA [Suspect]
     Active Substance: OCTREOTIDE
     Indication: Acromegaly
     Dosage: 60 MILLIGRAM
     Route: 048
     Dates: start: 20211012

REACTIONS (3)
  - Product use issue [Unknown]
  - Product supply issue [Unknown]
  - Product dose omission issue [Unknown]
